FAERS Safety Report 7514292-3 (Version None)
Quarter: 2011Q2

REPORT INFORMATION
  Report Type: 
  Country: None (occurrence: None)
  Receive Date: 20110601
  Receipt Date: 20110523
  Transmission Date: 20111010
  Serious: Yes (Hospitalization)
  Sender: FDA-Public Use
  Company Number: US-BIOGENIDEC-2011BI019276

PATIENT
  Age: 52 Year
  Sex: Male

DRUGS (1)
  1. AVONEX [Suspect]
     Indication: MULTIPLE SCLEROSIS
     Route: 030
     Dates: start: 19961101

REACTIONS (6)
  - UPPER LIMB FRACTURE [None]
  - DEVICE BREAKAGE [None]
  - FEMUR FRACTURE [None]
  - MASS [None]
  - FALL [None]
  - ADVERSE DRUG REACTION [None]
